FAERS Safety Report 8154920-5 (Version None)
Quarter: 2012Q1

REPORT INFORMATION
  Report Type: 
  Country: None (occurrence: None)
  Receive Date: 20120221
  Receipt Date: 20120215
  Transmission Date: 20120608
  Serious: Yes (Death, Hospitalization)
  Sender: FDA-Public Use
  Company Number: PHHY2012BD011414

PATIENT
  Age: 45 Year
  Sex: Male

DRUGS (1)
  1. SEBIVO [Suspect]
     Indication: HEPATITIS B
     Route: 048
     Dates: start: 20110416

REACTIONS (4)
  - RESPIRATORY FAILURE [None]
  - HEPATIC CIRRHOSIS [None]
  - PLEURAL EFFUSION [None]
  - ASCITES [None]
